FAERS Safety Report 9849275 (Version 1)
Quarter: 2014Q1

REPORT INFORMATION
  Report Type: Spontaneous
  Country: US (occurrence: None)
  Receive Date: 20140127
  Receipt Date: 20140127
  Transmission Date: 20141002
  Serious: Yes (Hospitalization, Disabling)
  Sender: FDA-Public Use
  Company Number: None

PATIENT
  Age: 73 Year
  Sex: Female

DRUGS (18)
  1. TRANEXAMIC ACID [Suspect]
     Indication: HAEMORRHAGE PROPHYLAXIS
     Dosage: 650 MG?PRE-OP, 600MG POST ?INTRAVENOUS
     Route: 042
     Dates: start: 20130829
  2. PANTOPRAZOLE [Concomitant]
  3. VANCOMYCIN [Concomitant]
  4. METOCLOPRAMIDE [Concomitant]
  5. BACITRACIN [Concomitant]
  6. MORPHINE [Concomitant]
  7. ROPIVACAINE [Concomitant]
  8. MEPERIDINE [Concomitant]
  9. ONDANSETRON [Concomitant]
  10. ACETAMINOPHEN [Concomitant]
  11. HYDROMORPHONE [Concomitant]
  12. AMLODIPINE [Concomitant]
  13. LACTINEX [Concomitant]
  14. WARFARIN [Concomitant]
  15. SENNOSIDES [Concomitant]
  16. ATORVASTATIN [Concomitant]
  17. SCOPOLAMINE [Concomitant]
  18. ENOXAPARIN [Concomitant]

REACTIONS (4)
  - Embolic stroke [None]
  - Aphasia [None]
  - Cerebral infarction [None]
  - Blindness [None]
